FAERS Safety Report 7108634-0 (Version None)
Quarter: 2010Q4

REPORT INFORMATION
  Report Type: 
  Country: None (occurrence: None)
  Receive Date: 20101117
  Receipt Date: 20101111
  Transmission Date: 20110411
  Serious: Yes (Hospitalization)
  Sender: FDA-Public Use
  Company Number: CH-PFIZER INC-2010145417

PATIENT
  Age: 52 Year
  Sex: Female

DRUGS (4)
  1. DEPO-MEDROL [Suspect]
     Indication: BACK PAIN
     Dosage: 40 MG, SINGLE
     Route: 030
     Dates: start: 20100922, end: 20100922
  2. DEPO-MEDROL [Suspect]
     Dosage: 80 MG, SINGLE
     Route: 008
     Dates: start: 20100929, end: 20100929
  3. MINALGIN [Concomitant]
     Indication: BACK PAIN
     Dosage: 500 MG, 2X/DAY
     Route: 048
     Dates: end: 20101023
  4. VALIUM [Concomitant]
     Dosage: UNK
     Route: 048
     Dates: end: 20101023

REACTIONS (2)
  - MANIA [None]
  - PSYCHOTIC DISORDER [None]
